FAERS Safety Report 6974709-X (Version None)
Quarter: 2010Q3

REPORT INFORMATION
  Report Type: 
  Country: None (occurrence: None)
  Receive Date: 20100909
  Receipt Date: 20081201
  Transmission Date: 20110219
  Serious: No
  Sender: FDA-Public Use
  Company Number: US-WYE-H07044108

PATIENT
  Sex: Female
  Weight: 62.65 kg

DRUGS (4)
  1. PRISTIQ [Suspect]
     Indication: ANXIETY
     Route: 048
     Dates: start: 20081001
  2. PREMPRO [Concomitant]
  3. SEROQUEL [Concomitant]
  4. TOPROL-XL [Concomitant]

REACTIONS (1)
  - ALOPECIA [None]
